FAERS Safety Report 23183605 (Version 1)
Quarter: 2023Q4

REPORT INFORMATION
  Report Type: Spontaneous
  Country: US (occurrence: US)
  Receive Date: 20231114
  Receipt Date: 20231114
  Transmission Date: 20240110
  Serious: No
  Sender: FDA-Public Use
  Company Number: US-PFIZER INC-202300355643

PATIENT
  Age: 60 Year
  Sex: Male

DRUGS (1)
  1. EUCRISA [Suspect]
     Active Substance: CRISABOROLE
     Dosage: APPLY TO THE AFFECTED AREAS OF BEARD DAILY

REACTIONS (2)
  - Pruritus [Unknown]
  - Off label use [Unknown]
